FAERS Safety Report 24223131 (Version 1)
Quarter: 2024Q3

REPORT INFORMATION
  Report Type: Spontaneous
  Country: CA (occurrence: CA)
  Receive Date: 20240819
  Receipt Date: 20240819
  Transmission Date: 20241017
  Serious: Yes (Other)
  Sender: PFIZER
  Company Number: CA-PFIZER INC-202300435677

PATIENT
  Age: 75 Year
  Sex: Female

DRUGS (2)
  1. XELJANZ [Suspect]
     Active Substance: TOFACITINIB CITRATE
     Indication: Uveitis
     Dosage: 5 MG, 2X/DAY
     Route: 048
     Dates: start: 2023
  2. ATROPINE [Concomitant]
     Active Substance: ATROPINE

REACTIONS (3)
  - Eye disorder [Unknown]
  - Dry mouth [Unknown]
  - Off label use [Unknown]
